FAERS Safety Report 7144791-8 (Version None)
Quarter: 2010Q4

REPORT INFORMATION
  Report Type: 
  Country: None (occurrence: None)
  Receive Date: 20101112
  Receipt Date: 20100924
  Transmission Date: 20110411
  Serious: Yes (Other)
  Sender: FDA-Public Use
  Company Number: 1000016454

PATIENT
  Age: 45 Year
  Sex: Female

DRUGS (5)
  1. SAVELLA [Suspect]
     Indication: FIBROMYALGIA
     Dosage: 12.5 MG (12.5 MG, 1 IN 1 D), ORAL; 25 MG (12,5 MG, 2 IN 1 D), ORAL; 50 MG (25 MG, 2 IN 1 D) ORAL
     Route: 048
     Dates: start: 20100801, end: 20100801
  2. SAVELLA [Suspect]
     Indication: FIBROMYALGIA
     Dosage: 12.5 MG (12.5 MG, 1 IN 1 D), ORAL; 25 MG (12,5 MG, 2 IN 1 D), ORAL; 50 MG (25 MG, 2 IN 1 D) ORAL
     Route: 048
     Dates: start: 20100801, end: 20100801
  3. SAVELLA [Suspect]
     Indication: FIBROMYALGIA
     Dosage: 12.5 MG (12.5 MG, 1 IN 1 D), ORAL; 25 MG (12,5 MG, 2 IN 1 D), ORAL; 50 MG (25 MG, 2 IN 1 D) ORAL
     Route: 048
     Dates: start: 20100801, end: 20100801
  4. SAVELLA [Suspect]
     Indication: FIBROMYALGIA
     Dosage: 100 MG (50 MG, 2 IN 1 D),ORAL
     Route: 048
     Dates: start: 20100801, end: 20100801
  5. BC PILLS [Concomitant]

REACTIONS (5)
  - AGGRESSION [None]
  - DEPRESSION [None]
  - IRRITABILITY [None]
  - SKIN LACERATION [None]
  - SUICIDAL IDEATION [None]
